FAERS Safety Report 4473074-X (Version None)
Quarter: 2004Q4

REPORT INFORMATION
  Report Type: 
  Country: None (occurrence: None)
  Receive Date: 20041013
  Receipt Date: 20040930
  Transmission Date: 20050328
  Serious: Yes (Disabling)
  Sender: FDA-Public Use
  Company Number: RU-GLAXOSMITHKLINE-B0347661A

PATIENT
  Age: 57 Year
  Sex: Female
  Weight: 90 kg

DRUGS (5)
  1. SERETIDE [Suspect]
     Indication: ASTHMA
     Route: 055
     Dates: start: 20040511
  2. METFORMIN HCL [Concomitant]
     Indication: DIABETES MELLITUS NON-INSULIN-DEPENDENT
     Dosage: 3.5MG PER DAY
     Route: 048
     Dates: start: 19980101
  3. NITROSORBID [Concomitant]
     Indication: HEART DISEASE CONGENITAL
     Dosage: 60MG PER DAY
     Route: 048
     Dates: start: 20040101
  4. VERAPAMIL [Concomitant]
     Indication: HYPERTENSION
     Dosage: 240MG PER DAY
     Route: 048
     Dates: start: 20040101
  5. CORTICOSTEROIDS [Concomitant]
     Indication: ASTHMA
     Dates: start: 19960101

REACTIONS (2)
  - FALL [None]
  - RADIUS FRACTURE [None]
